FAERS Safety Report 6429839-8 (Version None)
Quarter: 2009Q4

REPORT INFORMATION
  Report Type: 
  Country: None (occurrence: None)
  Receive Date: 20091106
  Receipt Date: 20091026
  Transmission Date: 20100525
  Serious: No
  Sender: FDA-Public Use
  Company Number: US-B.I. PHARMACEUTICALS,INC./RIDGEFIELD-2009-BP-07803BP

PATIENT
  Sex: Female

DRUGS (4)
  1. SPIRIVA [Suspect]
     Indication: CHRONIC OBSTRUCTIVE PULMONARY DISEASE
     Dosage: 18 MCG
     Route: 055
     Dates: start: 20090501
  2. DIOVAN [Concomitant]
     Indication: HYPERTENSION
  3. VERAPAMIL [Concomitant]
     Indication: HYPERTENSION
  4. LEVOXYL [Concomitant]

REACTIONS (1)
  - DRUG INEFFECTIVE [None]
